FAERS Safety Report 5059907-7 (Version None)
Quarter: 2006Q3

REPORT INFORMATION
  Report Type: 
  Country: None (occurrence: None)
  Receive Date: 20060718
  Receipt Date: 20060327
  Transmission Date: 20061208
  Serious: Yes (Death, Other)
  Sender: FDA-Public Use
  Company Number: VE200607001149

PATIENT
  Age: 61 Year
  Sex: Female

DRUGS (3)
  1. ZYPREXA [Suspect]
  2. CYMBALTA [Suspect]
     Indication: DEPRESSION
  3. EFFEXOR [Concomitant]

REACTIONS (2)
  - ANXIETY [None]
  - COMPLETED SUICIDE [None]
